FAERS Safety Report 17173419 (Version 1)
Quarter: 2019Q4

REPORT INFORMATION
  Report Type: Spontaneous
  Country: US (occurrence: US)
  Receive Date: 20191219
  Receipt Date: 20191219
  Transmission Date: 20200122
  Serious: Yes (Hospitalization)
  Sender: FDA-Public Use
  Company Number: US-PCCINC-2019-PEL-000452

PATIENT

DRUGS (3)
  1. GABLOFEN [Suspect]
     Active Substance: BACLOFEN
     Indication: PARANEOPLASTIC SYNDROME
  2. GABLOFEN [Suspect]
     Active Substance: BACLOFEN
     Indication: PARALYSIS
     Dosage: UNK
     Route: 037
  3. GABLOFEN [Suspect]
     Active Substance: BACLOFEN
     Indication: MUSCLE SPASTICITY

REACTIONS (8)
  - Device malfunction [Unknown]
  - Device failure [Unknown]
  - Withdrawal syndrome [Unknown]
  - Tachycardia [Recovered/Resolved]
  - Lethargy [Unknown]
  - Hypertension [Recovered/Resolved]
  - Hyperhidrosis [Unknown]
  - Speech disorder [Unknown]
